FAERS Safety Report 16100551 (Version 1)
Quarter: 2019Q1

REPORT INFORMATION
  Report Type: Spontaneous
  Country: GB (occurrence: GB)
  Receive Date: 20190321
  Receipt Date: 20190321
  Transmission Date: 20190418
  Serious: Yes (Hospitalization)
  Sender: FDA-Public Use
  Company Number: GB-MYLANLABS-2019M1025586

PATIENT
  Age: 66 Year
  Weight: 76.7 kg

DRUGS (3)
  1. SALOFALK                           /00747601/ [Concomitant]
     Active Substance: MESALAMINE
     Dosage: 1 GRAM
  2. MESALAZINE [Concomitant]
     Active Substance: MESALAMINE
     Dosage: UNK
  3. AZATHIOPRINE. [Suspect]
     Active Substance: AZATHIOPRINE
     Indication: COLITIS ULCERATIVE
     Dosage: 100 MILLIGRAM
     Route: 048
     Dates: start: 20180714, end: 20180821

REACTIONS (2)
  - Liver function test increased [Recovering/Resolving]
  - C-reactive protein increased [Recovering/Resolving]

NARRATIVE: CASE EVENT DATE: 20180821
